FAERS Safety Report 5073379-8 (Version None)
Quarter: 2006Q3

REPORT INFORMATION
  Report Type: 
  Country: None (occurrence: None)
  Receive Date: 20060803
  Receipt Date: 20060724
  Transmission Date: 20061208
  Serious: No
  Sender: FDA-Public Use
  Company Number: US200601002586

PATIENT
  Age: 58 Year
  Sex: Female
  Weight: 63.5 kg

DRUGS (16)
  1. CYMBALTA [Suspect]
     Indication: DEPRESSION
     Dosage: 60 MG ORAL
     Route: 048
     Dates: start: 20041001
  2. ACCOLATE [Concomitant]
  3. TRIAMTERIL (HYDROCHLOROTHIAZIDE, TRIAMTERENE) [Concomitant]
  4. ESTROGENS CONJUGATED [Concomitant]
  5. LEVOXYL [Concomitant]
  6. ALLEGRA [Concomitant]
  7. OXYCONTIN [Concomitant]
  8. OXYCODONE HCL [Concomitant]
  9. FOLIC ACID [Concomitant]
  10. XANAX/USA/(ALPRAZOLAM) [Concomitant]
  11. KLONOPIN [Concomitant]
  12. AMBIEN [Concomitant]
  13. TRAZODONE HCL [Concomitant]
  14. SEROQUEL [Concomitant]
  15. PRILOSEC [Concomitant]
  16. CYANOCOBALAMIN [Concomitant]

REACTIONS (9)
  - ALANINE AMINOTRANSFERASE INCREASED [None]
  - ASPARTATE AMINOTRANSFERASE INCREASED [None]
  - BLOOD ALKALINE PHOSPHATASE INCREASED [None]
  - BLOOD IRON INCREASED [None]
  - DECREASED APPETITE [None]
  - DIVERTICULUM [None]
  - ILEUS [None]
  - SERUM FERRITIN DECREASED [None]
  - WEIGHT DECREASED [None]
